FAERS Safety Report 19624371 (Version 1)
Quarter: 2021Q3

REPORT INFORMATION
  Report Type: Spontaneous
  Country: AR (occurrence: AR)
  Receive Date: 20210728
  Receipt Date: 20210728
  Transmission Date: 20211014
  Serious: Yes (Disabling, Other)
  Sender: FDA-Public Use
  Company Number: AR-PFIZER INC-2021907538

PATIENT
  Age: 60 Year
  Sex: Female

DRUGS (1)
  1. SOMAVERT [Suspect]
     Active Substance: PEGVISOMANT
     Indication: ACROMEGALY
     Dosage: 15 MG, DAILY (7 TIMES/WEEK)
     Dates: start: 20111201

REACTIONS (2)
  - Gait inability [Unknown]
  - Paralysis [Unknown]

NARRATIVE: CASE EVENT DATE: 2021
